FAERS Safety Report 13885415 (Version 3)
Quarter: 2017Q3

REPORT INFORMATION
  Report Type: Report from Study
  Country: FR (occurrence: FR)
  Receive Date: 20170821
  Receipt Date: 20170921
  Transmission Date: 20171127
  Serious: Yes (Hospitalization, Other)
  Sender: FDA-Public Use
  Company Number: FR-SHIRE-FR201719121

PATIENT
  Age: 7 Year
  Sex: Female
  Weight: 21.6 kg

DRUGS (15)
  1. 6-MERCAPTOPURINE MONOHYDRATE [Suspect]
     Active Substance: MERCAPTOPURINE
     Indication: ACUTE LYMPHOCYTIC LEUKAEMIA
     Dosage: 50 MG, OTHER (X12)
     Route: 048
     Dates: start: 20170513, end: 20170624
  2. SULFAMETHOXAZOLE AND TRIMETHOPRIM [Concomitant]
     Active Substance: SULFAMETHOXAZOLE\TRIMETHOPRIM
     Indication: ANTIBIOTIC PROPHYLAXIS
  3. POVIDONE-IODINE. [Concomitant]
     Active Substance: POVIDONE-IODINE
     Indication: PROPHYLAXIS
  4. PEGASPARGASE [Suspect]
     Active Substance: PEGASPARGASE
     Indication: ACUTE LYMPHOCYTIC LEUKAEMIA
     Dosage: 2275 IU, UNK
     Route: 042
     Dates: start: 20170526, end: 20170627
  5. CYCLOPHOSPHAMIDE. [Suspect]
     Active Substance: CYCLOPHOSPHAMIDE
     Indication: ACUTE LYMPHOCYTIC LEUKAEMIA
     Dosage: 920 MG, UNK
     Route: 042
     Dates: start: 20170513, end: 20170613
  6. CYTARABINE. [Suspect]
     Active Substance: CYTARABINE
     Dosage: 69 MG, OTHER (X8)
     Route: 042
     Dates: start: 20170515, end: 20170625
  7. CYTARABINE. [Suspect]
     Active Substance: CYTARABINE
     Dosage: 30 MG, UNK
     Route: 037
     Dates: start: 20170515, end: 20170615
  8. PEGASPARGASE [Suspect]
     Active Substance: PEGASPARGASE
     Dosage: 2300 IU, UNK
     Route: 042
     Dates: start: 20170526, end: 20170627
  9. HYDROCORTISONE. [Suspect]
     Active Substance: HYDROCORTISONE
     Dosage: 15 MG, UNK
     Route: 037
     Dates: start: 20170515, end: 20170615
  10. 6-MERCAPTOPURINE MONOHYDRATE [Suspect]
     Active Substance: MERCAPTOPURINE
     Dosage: 75 MG, OTHER (X4)
     Route: 048
     Dates: start: 20170525, end: 20170626
  11. AMPHOTERICIN B. [Concomitant]
     Active Substance: AMPHOTERICIN B
     Indication: ANTIFUNGAL PROPHYLAXIS
  12. CYTARABINE. [Suspect]
     Active Substance: CYTARABINE
     Indication: ACUTE LYMPHOCYTIC LEUKAEMIA
     Dosage: 68 MG, OTHER (X8)
     Route: 042
     Dates: start: 20170515, end: 20170625
  13. HYDROCORTISONE. [Suspect]
     Active Substance: HYDROCORTISONE
     Indication: ACUTE LYMPHOCYTIC LEUKAEMIA
     Dosage: 12 MG, UNK
     Route: 037
     Dates: start: 20170515, end: 20170615
  14. VINCRISTINE [Suspect]
     Active Substance: VINCRISTINE
     Indication: ACUTE LYMPHOCYTIC LEUKAEMIA
     Dosage: 1.38 MG, UNK
     Route: 042
     Dates: start: 20170526, end: 20170704
  15. METHOTREXATE. [Suspect]
     Active Substance: METHOTREXATE
     Indication: ACUTE LYMPHOCYTIC LEUKAEMIA
     Dosage: 12 MG, UNK
     Route: 037
     Dates: start: 20170515, end: 20170615

REACTIONS (1)
  - Febrile bone marrow aplasia [Recovered/Resolved]

NARRATIVE: CASE EVENT DATE: 20170705
